FAERS Safety Report 25776054 (Version 1)
Quarter: 2025Q3

REPORT INFORMATION
  Report Type: Spontaneous
  Country: US (occurrence: US)
  Receive Date: 20250909
  Receipt Date: 20250909
  Transmission Date: 20251021
  Serious: Yes (Hospitalization)
  Sender: ENDO
  Company Number: US-ENDO USA, INC.-2025-000158

PATIENT
  Sex: Male

DRUGS (1)
  1. CLONAZEPAM [Suspect]
     Active Substance: CLONAZEPAM
     Indication: Product used for unknown indication
     Route: 065

REACTIONS (4)
  - Fall [Unknown]
  - Cellulitis [Unknown]
  - Injury [Unknown]
  - Recalled product administered [Unknown]
